FAERS Safety Report 18503716 (Version 1)
Quarter: 2020Q4

REPORT INFORMATION
  Report Type: Spontaneous
  Country: US (occurrence: US)
  Receive Date: 20201113
  Receipt Date: 20201113
  Transmission Date: 20210114
  Serious: Yes (Other)
  Sender: FDA-Public Use
  Company Number: US-TEVA-2020-US-1847999

PATIENT
  Age: 38 Year
  Sex: Male

DRUGS (3)
  1. NORTRIPTYLINE [Suspect]
     Active Substance: NORTRIPTYLINE
     Dosage: 50MG PER DAY
     Route: 065
  2. ULTRAM [Suspect]
     Active Substance: TRAMADOL HYDROCHLORIDE
     Dosage: 400MG PER DAY
     Route: 065
  3. METHOTREXATE. [Suspect]
     Active Substance: METHOTREXATE
     Route: 065

REACTIONS (18)
  - Mental impairment [Unknown]
  - Seizure [Unknown]
  - Near death experience [Unknown]
  - Photophobia [Unknown]
  - Temperature intolerance [Unknown]
  - Dependence [Unknown]
  - Loss of personal independence in daily activities [Unknown]
  - Illness [Unknown]
  - Suicidal ideation [Unknown]
  - Disturbance in attention [Unknown]
  - Ageusia [Unknown]
  - Shock [Unknown]
  - Anosmia [Unknown]
  - Withdrawal syndrome [Unknown]
  - Fear [Unknown]
  - Suicide attempt [Unknown]
  - Feeling abnormal [Unknown]
  - Hyperacusis [Unknown]

NARRATIVE: CASE EVENT DATE: 19991222
